FAERS Safety Report 5376699-2 (Version None)
Quarter: 2007Q2

REPORT INFORMATION
  Report Type: 
  Country: None (occurrence: None)
  Receive Date: 20070629
  Receipt Date: 20070618
  Transmission Date: 20071010
  Serious: Yes (Hospitalization)
  Sender: FDA-Public Use
  Company Number: US020196

PATIENT
  Sex: Male
  Weight: 77.1115 kg

DRUGS (12)
  1. ACTIQ [Suspect]
     Indication: BACK PAIN
     Dosage: 600UG QID PRN BUCCAL
     Route: 002
     Dates: start: 20010101, end: 20061101
  2. ACTIQ [Suspect]
     Indication: BACK PAIN
     Dosage: 600UG QID PRN BUCCAL
     Route: 002
     Dates: start: 20070101, end: 20070501
  3. FENTORA [Concomitant]
  4. DURAGESIC-100 [Concomitant]
  5. SOMA [Concomitant]
  6. ZONEGRAN [Concomitant]
  7. CARBATROL [Concomitant]
  8. LYRICA [Concomitant]
  9. CYMBALTA [Concomitant]
  10. ASMANEX TWISTHALER [Concomitant]
  11. DILAUDID [Concomitant]
  12. LIDODERM [Concomitant]

REACTIONS (8)
  - ASTHENIA [None]
  - CHILLS [None]
  - COLD SWEAT [None]
  - DRUG EFFECT DECREASED [None]
  - DRUG WITHDRAWAL SYNDROME [None]
  - GRAND MAL CONVULSION [None]
  - PAIN [None]
  - TREMOR [None]
